FAERS Safety Report 23740705 (Version 1)
Quarter: 2024Q2

REPORT INFORMATION
  Report Type: Spontaneous
  Country: QA (occurrence: QA)
  Receive Date: 20240415
  Receipt Date: 20240415
  Transmission Date: 20240716
  Serious: Yes (Other)
  Sender: FDA-Public Use
  Company Number: QA-TOLMAR, INC.-24QA048282

PATIENT
  Age: 48 Year
  Sex: Male

DRUGS (9)
  1. JATENZO [Suspect]
     Active Substance: TESTOSTERONE UNDECANOATE
     Indication: Hormone replacement therapy
     Dosage: 1 GRAM, Q 3 MONTH
     Route: 030
  2. PASIREOTIDE [Suspect]
     Active Substance: PASIREOTIDE
     Indication: Pituitary tumour benign
     Dosage: 40 MILLIGRAM, 4/WEEK
  3. LEVOTHYROXINE [Concomitant]
     Active Substance: LEVOTHYROXINE\LEVOTHYROXINE SODIUM
     Indication: Hormone replacement therapy
     Dosage: 200 MICROGRAM, QD
  4. CABERGOLINE [Concomitant]
     Active Substance: CABERGOLINE
     Indication: Pituitary tumour benign
     Dosage: 0.5 MILLIGRAM, QD
  5. CABERGOLINE [Concomitant]
     Active Substance: CABERGOLINE
     Dosage: 0.5 MILLIGRAM, 1/WEEK
  6. CABERGOLINE [Concomitant]
     Active Substance: CABERGOLINE
     Dosage: 3 MILLIGRAM, 1/WEEK
  7. OCTREOTIDE [Concomitant]
     Active Substance: OCTREOTIDE\OCTREOTIDE ACETATE
     Indication: Pituitary tumour benign
     Dosage: 20 MILLIGRAM, 4/WEEK
  8. OCTREOTIDE [Concomitant]
     Active Substance: OCTREOTIDE\OCTREOTIDE ACETATE
     Dosage: 30 MILLIGRAM, 4/WEEK
  9. OCTREOTIDE [Concomitant]
     Active Substance: OCTREOTIDE\OCTREOTIDE ACETATE
     Dosage: 40 MILLIGRAM, 4/WEEK

REACTIONS (5)
  - Type 2 diabetes mellitus [Unknown]
  - Abdominal pain [Unknown]
  - Incorrect route of product administration [Unknown]
  - Diarrhoea [Unknown]
  - Headache [Unknown]
